FAERS Safety Report 23981542 (Version 1)
Quarter: 2024Q2

REPORT INFORMATION
  Report Type: Other
  Country: PT (occurrence: PT)
  Receive Date: 20240617
  Receipt Date: 20240617
  Transmission Date: 20240716
  Serious: Yes (Hospitalization, Other)
  Sender: FDA-Public Use
  Company Number: PT-Vista Pharmaceuticals Inc.-2158201

PATIENT
  Age: 84 Year
  Sex: Female

DRUGS (1)
  1. SULFAMETHOXAZOLE\TRIMETHOPRIM [Suspect]
     Active Substance: SULFAMETHOXAZOLE\TRIMETHOPRIM
     Indication: Cystitis
     Route: 048

REACTIONS (8)
  - Type IV hypersensitivity reaction [Recovered/Resolved]
  - Blood viscosity increased [Recovered/Resolved]
  - C-reactive protein increased [Recovered/Resolved]
  - Hepatic lesion [Recovered/Resolved]
  - Hyponatraemia [Recovered/Resolved]
  - Acute kidney injury [Recovered/Resolved]
  - Pancytopenia [Recovered/Resolved]
  - Multiple organ dysfunction syndrome [Recovered/Resolved]
